FAERS Safety Report 8574883-8 (Version None)
Quarter: 2012Q3

REPORT INFORMATION
  Report Type: 
  Country: None (occurrence: None)
  Receive Date: 20120807
  Receipt Date: 20120724
  Transmission Date: 20120928
  Serious: No
  Sender: FDA-Public Use
  Company Number: US-009507513-1207USA009208

PATIENT

DRUGS (5)
  1. VICTRELIS [Suspect]
     Indication: HEPATITIS C
     Route: 048
  2. IBUPROFEN [Concomitant]
  3. RIBAVIRIN [Suspect]
  4. PEGASYS [Suspect]
  5. CELEXA [Concomitant]

REACTIONS (6)
  - ANAEMIA [None]
  - LOSS OF LIBIDO [None]
  - INTRAOCULAR PRESSURE INCREASED [None]
  - HEADACHE [None]
  - WEIGHT DECREASED [None]
  - MUSCLE ATROPHY [None]
